FAERS Safety Report 5344434-X (Version None)
Quarter: 2007Q2

REPORT INFORMATION
  Report Type: 
  Country: None (occurrence: None)
  Receive Date: 20070604
  Receipt Date: 20070524
  Transmission Date: 20071010
  Serious: Yes (Other)
  Sender: FDA-Public Use
  Company Number: GB-PFIZER INC-2007036604

PATIENT
  Age: 21 Year
  Sex: Female

DRUGS (4)
  1. LYRICA [Suspect]
     Indication: EPILEPSY
     Route: 048
  2. TEGRETOL [Suspect]
     Indication: EPILEPSY
     Route: 048
  3. PHENYTOIN [Suspect]
  4. KEPPRA [Concomitant]
     Indication: EPILEPSY
     Route: 048

REACTIONS (5)
  - ANTICONVULSANT DRUG LEVEL INCREASED [None]
  - BALANCE DISORDER [None]
  - DIPLOPIA [None]
  - DIZZINESS [None]
  - EPILEPSY [None]
